FAERS Safety Report 5451984-4 (Version None)
Quarter: 2007Q3

REPORT INFORMATION
  Report Type: 
  Country: None (occurrence: None)
  Receive Date: 20070912
  Receipt Date: 20070831
  Transmission Date: 20080115
  Serious: Yes (Other)
  Sender: FDA-Public Use
  Company Number: GXKR2007GB07633

PATIENT
  Age: 89 Year
  Sex: Female

DRUGS (5)
  1. ACETAMINOPHEN AND CODEINE PHOSPHATE [Suspect]
     Indication: PAIN
     Dosage: ORAL
     Route: 048
     Dates: start: 20070724, end: 20070727
  2. CITALOPRAM HYDROCHLORIDE [Concomitant]
  3. LANSOPRAZOLE [Concomitant]
  4. LOSARTAN POSTASSIUM [Concomitant]
  5. PROCHLORPERAZINE [Concomitant]

REACTIONS (1)
  - IMMOBILE [None]
